FAERS Safety Report 6611724-X (Version None)
Quarter: 2010Q1

REPORT INFORMATION
  Report Type: 
  Country: None (occurrence: None)
  Receive Date: 20100301
  Receipt Date: 20100301
  Transmission Date: 20100710
  Serious: Yes (Hospitalization)
  Sender: FDA-Public Use
  Company Number: None

PATIENT
  Sex: Female
  Weight: 68.0396 kg

DRUGS (1)
  1. METOPROLOL SUCCINATE [Suspect]
     Indication: HYPERTENSION
     Dosage: 50 MG 1QD PO
     Route: 048
     Dates: start: 20100126, end: 20100228

REACTIONS (4)
  - BLOOD PRESSURE FLUCTUATION [None]
  - MALAISE [None]
  - PALPITATIONS [None]
  - PRODUCT SUBSTITUTION ISSUE [None]
